FAERS Safety Report 25042566 (Version 2)
Quarter: 2025Q1

REPORT INFORMATION
  Report Type: Spontaneous
  Country: TR (occurrence: TR)
  Receive Date: 20250305
  Receipt Date: 20250331
  Transmission Date: 20250409
  Serious: Yes (Hospitalization, Other)
  Sender: ALEXION PHARMACEUTICALS
  Company Number: TR-ASTRAZENECA-202502TUR026417TR

PATIENT
  Age: 4 Month
  Weight: 5.5 kg

DRUGS (1)
  1. SOLIRIS [Suspect]
     Active Substance: ECULIZUMAB
     Indication: Atypical haemolytic uraemic syndrome
     Route: 065

REACTIONS (3)
  - Urinoma [Unknown]
  - Vesicoureteric reflux [Unknown]
  - Haemangioma [Unknown]
